FAERS Safety Report 12777589 (Version 1)
Quarter: 2016Q3

REPORT INFORMATION
  Report Type: Spontaneous
  Country: US (occurrence: US)
  Receive Date: 20160924
  Receipt Date: 20160924
  Transmission Date: 20161109
  Serious: No
  Sender: FDA-Public Use
  Company Number: US-B.I. PHARMACEUTICALS,INC./RIDGEFIELD-2016-BI-61781BP

PATIENT
  Sex: Female

DRUGS (2)
  1. ADVAIR HFA [Concomitant]
     Active Substance: FLUTICASONE PROPIONATE\SALMETEROL XINAFOATE
     Indication: CHRONIC OBSTRUCTIVE PULMONARY DISEASE
     Route: 055
  2. COMBIVENT [Suspect]
     Active Substance: ALBUTEROL SULFATE\IPRATROPIUM BROMIDE
     Indication: CHRONIC OBSTRUCTIVE PULMONARY DISEASE
     Dosage: DOSE PER APPLICATION: 20 MCG/100 MCG; DAILY DOSE: 60 MCG/300 MCG
     Route: 055
     Dates: start: 2010

REACTIONS (6)
  - Burning sensation [Unknown]
  - Anxiety [Unknown]
  - Hypoaesthesia oral [Unknown]
  - Hypoaesthesia [Unknown]
  - Feeling jittery [Unknown]
  - Nervousness [Unknown]

NARRATIVE: CASE EVENT DATE: 20160920
